FAERS Safety Report 20644839 (Version 1)
Quarter: 2022Q1

REPORT INFORMATION
  Report Type: Spontaneous
  Country: US (occurrence: None)
  Receive Date: 20220328
  Receipt Date: 20220328
  Transmission Date: 20220423
  Serious: Yes (Life-Threatening, Hospitalization)
  Sender: FDA-Public Use
  Company Number: None

PATIENT
  Age: 64 Year
  Sex: Male
  Weight: 86.85 kg

DRUGS (13)
  1. CILGAVIMAB\TIXAGEVIMAB [Suspect]
     Active Substance: CILGAVIMAB\TIXAGEVIMAB
     Indication: Renal transplant
     Route: 030
     Dates: start: 20220324, end: 20220324
  2. FLUCONAZOLE [Concomitant]
     Active Substance: FLUCONAZOLE
     Dates: start: 20220201
  3. TACROLIMUS [Concomitant]
     Active Substance: TACROLIMUS
     Dates: start: 20220131
  4. ATOVAQUONE [Concomitant]
     Active Substance: ATOVAQUONE
     Dates: start: 20220131
  5. PREDNISONE [Concomitant]
     Active Substance: PREDNISONE
     Dates: start: 20220131
  6. MYCOPHENOLIC ACID [Concomitant]
     Active Substance: MYCOPHENOLIC ACID
     Dates: start: 20220131
  7. VALACYCLOVIR [Concomitant]
     Active Substance: VALACYCLOVIR HYDROCHLORIDE
     Dates: start: 20220201
  8. ATORVASTATIN [Concomitant]
     Active Substance: ATORVASTATIN
  9. INSULIN NOS [Concomitant]
     Active Substance: INSULIN NOS
  10. EZETIMIBE [Concomitant]
     Active Substance: EZETIMIBE
  11. ASPIRIN [Concomitant]
     Active Substance: ASPIRIN
  12. FAMOTIDINE [Concomitant]
     Active Substance: FAMOTIDINE
  13. METOPROLOL [Concomitant]
     Active Substance: METOPROLOL

REACTIONS (3)
  - Deep vein thrombosis [None]
  - Acute kidney injury [None]
  - Pelvic venous thrombosis [None]

NARRATIVE: CASE EVENT DATE: 20220325
